FAERS Safety Report 5902772-3 (Version None)
Quarter: 2008Q3

REPORT INFORMATION
  Report Type: 
  Country: None (occurrence: None)
  Receive Date: 20080930
  Receipt Date: 20080923
  Transmission Date: 20090109
  Serious: Yes (Hospitalization)
  Sender: FDA-Public Use
  Company Number: GB-BAYER-200610467BNE

PATIENT
  Age: 59 Year
  Sex: Male
  Weight: 71 kg

DRUGS (7)
  1. SORAFENIB [Suspect]
     Indication: METASTATIC RENAL CELL CARCINOMA
     Dosage: TOTAL DAILY DOSE: 800 MG  UNIT DOSE: 200 MG
     Route: 048
     Dates: start: 20060404, end: 20060413
  2. SORAFENIB [Suspect]
     Dates: start: 20060429
  3. SIMVASTATIN [Concomitant]
     Route: 048
  4. OXYCONTIN [Concomitant]
     Route: 048
  5. ACETAMINOPHEN [Concomitant]
     Route: 048
  6. VOLTAREN [Concomitant]
     Route: 048
  7. OXYNORM [Concomitant]
     Route: 048

REACTIONS (7)
  - C-REACTIVE PROTEIN INCREASED [None]
  - COUGH [None]
  - DYSPNOEA [None]
  - PLEURITIC PAIN [None]
  - PYREXIA [None]
  - RASH [None]
  - VOMITING [None]
